FAERS Safety Report 17777283 (Version 1)
Quarter: 2020Q2

REPORT INFORMATION
  Report Type: Spontaneous
  Country: US (occurrence: US)
  Receive Date: 20200513
  Receipt Date: 20200513
  Transmission Date: 20200714
  Serious: No
  Sender: FDA-Public Use
  Company Number: US-TORRENT-00008644

PATIENT
  Age: 59 Year
  Sex: Female
  Weight: 35 kg

DRUGS (1)
  1. LOSARTAN POTASSIUM HYDROCHLOROTHIAZIDE TABLETS [Suspect]
     Active Substance: HYDROCHLOROTHIAZIDE\LOSARTAN POTASSIUM
     Indication: HYPERTENSION
     Dosage: UNKNOWN

REACTIONS (1)
  - Migraine [Not Recovered/Not Resolved]
